FAERS Safety Report 24049910 (Version 2)
Quarter: 2024Q3

REPORT INFORMATION
  Report Type: Spontaneous
  Country: US (occurrence: US)
  Receive Date: 20240704
  Receipt Date: 20240720
  Transmission Date: 20241016
  Serious: Yes (Life-Threatening, Hospitalization)
  Sender: TEVA
  Company Number: US-TEVA-VS-3214637

PATIENT
  Age: 74 Year
  Sex: Female

DRUGS (4)
  1. AMIODARONE [Suspect]
     Active Substance: AMIODARONE
     Indication: Hypertension
     Route: 065
  2. AMIODARONE [Suspect]
     Active Substance: AMIODARONE
     Indication: Hypertension
     Dosage: AMIODARONE BOLUS
     Route: 065
  3. DILTIAZEM [Suspect]
     Active Substance: DILTIAZEM
     Indication: Hypertension
     Route: 065
  4. METOPROLOL TARTRATE [Suspect]
     Active Substance: METOPROLOL TARTRATE
     Indication: Hypertension
     Route: 065

REACTIONS (16)
  - Thyrotoxic crisis [Unknown]
  - Acute kidney injury [Unknown]
  - Hypotension [Unknown]
  - Hypertransaminasaemia [Unknown]
  - Aortic stenosis [Unknown]
  - Lactic acidosis [Unknown]
  - Obstructive airways disorder [Unknown]
  - Faeces discoloured [Unknown]
  - Confusional state [Unknown]
  - Treatment noncompliance [Unknown]
  - Encephalopathy [Unknown]
  - Hypokinesia [Unknown]
  - Anaemia [Unknown]
  - Lethargy [Unknown]
  - Drug ineffective [Unknown]
  - Liver function test abnormal [Unknown]
